FAERS Safety Report 7501091-1 (Version None)
Quarter: 2011Q2

REPORT INFORMATION
  Report Type: 
  Country: None (occurrence: None)
  Receive Date: 20110524
  Receipt Date: 20110519
  Transmission Date: 20111010
  Serious: Yes (Other)
  Sender: FDA-Public Use
  Company Number: CA-PFIZER INC-2009283788

PATIENT
  Age: 69 Year
  Sex: Female

DRUGS (1)
  1. LIPITOR [Suspect]
     Dosage: 10 MG, UNK
     Dates: start: 20060101, end: 20091013

REACTIONS (5)
  - MUSCLE DISORDER [None]
  - MYALGIA [None]
  - ARTHRALGIA [None]
  - SKIN BURNING SENSATION [None]
  - PAIN [None]
